FAERS Safety Report 5068587-6 (Version None)
Quarter: 2006Q3

REPORT INFORMATION
  Report Type: 
  Country: None (occurrence: None)
  Receive Date: 20060802
  Receipt Date: 20051214
  Transmission Date: 20061208
  Serious: Yes (Other)
  Sender: FDA-Public Use
  Company Number: US-BRISTOL-MYERS SQUIBB COMPANY-13216197

PATIENT
  Age: 75 Year
  Sex: Male
  Weight: 88 kg

DRUGS (15)
  1. COUMADIN [Suspect]
     Indication: THROMBOSIS
     Dates: start: 20051001, end: 20051101
  2. ZETIA [Concomitant]
  3. COREG [Concomitant]
  4. ALLOPURINOL [Concomitant]
  5. AMARIL D [Concomitant]
  6. DIGITEK [Concomitant]
  7. TORSEMIDE [Concomitant]
  8. HUMALOG [Concomitant]
     Dosage: 12 U BEFORE MEALS, VARIES W/ GLUCOSE READING
  9. LANTUS [Concomitant]
     Dosage: DOSE UNIT = UNITS
  10. HYDRALAZINE HCL [Concomitant]
  11. ISOSORBIDE DINITRATE [Concomitant]
  12. AMBIEN [Concomitant]
  13. COLCHICINE [Concomitant]
  14. FOLTX [Concomitant]
  15. VITAMINS [Concomitant]

REACTIONS (3)
  - BLOOD GLUCOSE DECREASED [None]
  - INTERNATIONAL NORMALISED RATIO INCREASED [None]
  - RASH PRURITIC [None]
